FAERS Safety Report 7281483-9 (Version None)
Quarter: 2011Q1

REPORT INFORMATION
  Report Type: 
  Country: None (occurrence: None)
  Receive Date: 20110208
  Receipt Date: 20110126
  Transmission Date: 20110831
  Serious: Yes (Hospitalization, Other)
  Sender: FDA-Public Use
  Company Number: PHHY2010CA86149

PATIENT
  Sex: Male

DRUGS (8)
  1. SANDOSTATIN [Suspect]
     Indication: NEUROENDOCRINE TUMOUR
     Dosage: 150 UG, BID
     Route: 058
     Dates: end: 20101214
  2. DILAUDID [Concomitant]
     Dosage: UNK
  3. CELEXA [Concomitant]
     Dosage: UNK
  4. PANTOLOC [Concomitant]
     Dosage: UNK
  5. DIAMICRON [Concomitant]
     Dosage: UNK
  6. SANDOSTATIN LAR [Suspect]
     Indication: NEUROENDOCRINE TUMOUR
     Dosage: 20 MG PER MONTH
     Route: 030
  7. INSULIN [Concomitant]
     Dosage: UNK
  8. LIPITOR [Concomitant]
     Dosage: UNK

REACTIONS (2)
  - POSTOPERATIVE WOUND INFECTION [None]
  - ABDOMINAL INFECTION [None]
